FAERS Safety Report 18792995 (Version 4)
Quarter: 2021Q3

REPORT INFORMATION
  Report Type: Report from Study
  Country: None (occurrence: US)
  Receive Date: 20210127
  Receipt Date: 20210825
  Transmission Date: 20211014
  Serious: Yes (Hospitalization, Other)
  Sender: FDA-Public Use
  Company Number: US-ABBVIE-21K-163-3745524-00

PATIENT
  Sex: Female
  Weight: 49.94 kg

DRUGS (6)
  1. CREON [Suspect]
     Active Substance: PANCRELIPASE AMYLASE\PANCRELIPASE LIPASE\PANCRELIPASE PROTEASE
     Dosage: 1 CAPSULES WITH EACH MEAL
     Route: 048
     Dates: start: 2020, end: 2020
  2. CREON [Suspect]
     Active Substance: PANCRELIPASE AMYLASE\PANCRELIPASE LIPASE\PANCRELIPASE PROTEASE
     Dosage: 2?3 CAPSULES WITH EACH MEAL, 1?3 CAPSULES WITH EACH SNACK
     Route: 048
     Dates: start: 202010, end: 2020
  3. COVID?19 VACCINE [Concomitant]
     Indication: COVID-19 IMMUNISATION
     Dosage: ASTRAZENECA, TOOK IT THREE WEEKS BEFORE ?FEB?2021
     Route: 030
     Dates: start: 2021, end: 2021
  4. COVID?19 VACCINE [Concomitant]
     Dosage: ASTRAZENECA
     Route: 030
     Dates: start: 202102, end: 202102
  5. CREON [Suspect]
     Active Substance: PANCRELIPASE AMYLASE\PANCRELIPASE LIPASE\PANCRELIPASE PROTEASE
     Indication: DIARRHOEA
     Route: 048
     Dates: start: 2019, end: 2020
  6. CREON [Suspect]
     Active Substance: PANCRELIPASE AMYLASE\PANCRELIPASE LIPASE\PANCRELIPASE PROTEASE
     Dosage: 3 CAPSULES WITH EACH MEAL
     Route: 048
     Dates: start: 2020

REACTIONS (7)
  - Hip fracture [Recovering/Resolving]
  - Hypoacusis [Unknown]
  - Diarrhoea [Not Recovered/Not Resolved]
  - Fall [Recovering/Resolving]
  - SARS-CoV-2 test positive [Recovered/Resolved]
  - Femur fracture [Recovering/Resolving]
  - Asthenia [Unknown]

NARRATIVE: CASE EVENT DATE: 2019
